FAERS Safety Report 12227081 (Version 4)
Quarter: 2018Q2

REPORT INFORMATION
  Report Type: Spontaneous
  Country: US (occurrence: US)
  Receive Date: 20160331
  Receipt Date: 20180419
  Transmission Date: 20180711
  Serious: Yes (Hospitalization, Other)
  Sender: FDA-Public Use
  Company Number: US-PFIZER INC-2016181947

PATIENT
  Age: 82 Year
  Sex: Female

DRUGS (1)
  1. XELJANZ [Suspect]
     Active Substance: TOFACITINIB CITRATE
     Dosage: 5 MG, 2X/DAY
     Dates: start: 20141211

REACTIONS (4)
  - Thirst [Unknown]
  - Dry mouth [Unknown]
  - Intestinal obstruction [Unknown]
  - Anaemia [Unknown]

NARRATIVE: CASE EVENT DATE: 201803
